FAERS Safety Report 5491198-5 (Version None)
Quarter: 2007Q4

REPORT INFORMATION
  Report Type: 
  Country: None (occurrence: None)
  Receive Date: 20071019
  Receipt Date: 20071009
  Transmission Date: 20080405
  Serious: Yes (Other)
  Sender: FDA-Public Use
  Company Number: BR-PFIZER INC-2007085436

PATIENT
  Sex: Female
  Weight: 50 kg

DRUGS (1)
  1. FRONTAL [Suspect]
     Indication: ANXIETY
     Route: 048

REACTIONS (5)
  - ANXIETY [None]
  - ASTHENIA [None]
  - BLOOD PRESSURE INCREASED [None]
  - HEADACHE [None]
  - TACHYCARDIA [None]
